FAERS Safety Report 5848203-3 (Version None)
Quarter: 2008Q3

REPORT INFORMATION
  Report Type: 
  Country: None (occurrence: None)
  Receive Date: 20080818
  Receipt Date: 20080808
  Transmission Date: 20090109
  Serious: Yes (Hospitalization)
  Sender: FDA-Public Use
  Company Number: B0532498A

PATIENT
  Age: 39 Year
  Sex: Female

DRUGS (4)
  1. ZIAGEN [Suspect]
     Indication: ANTIRETROVIRAL THERAPY
     Dosage: 300MG TWICE PER DAY
     Route: 048
     Dates: start: 20080630, end: 20080709
  2. TMC125 [Suspect]
     Indication: ANTIRETROVIRAL THERAPY
     Dosage: 200MG TWICE PER DAY
     Route: 048
     Dates: start: 20080630, end: 20080709
  3. RALTEGRAVIR [Suspect]
     Indication: ANTIRETROVIRAL THERAPY
     Dosage: 400MG TWICE PER DAY
     Route: 048
     Dates: start: 20080630, end: 20080709
  4. VIREAD [Suspect]
     Indication: ANTIRETROVIRAL THERAPY
     Dosage: 300MG PER DAY
     Route: 048
     Dates: start: 20080630, end: 20080709

REACTIONS (6)
  - ASTHENIA [None]
  - CHILLS [None]
  - GENERALISED ERYTHEMA [None]
  - HEADACHE [None]
  - PRURITUS [None]
  - SKIN LESION [None]
